FAERS Safety Report 16900829 (Version 1)
Quarter: 2019Q4

REPORT INFORMATION
  Report Type: Spontaneous
  Country: US (occurrence: US)
  Receive Date: 20191009
  Receipt Date: 20191009
  Transmission Date: 20200122
  Serious: No
  Sender: FDA-Public Use
  Company Number: US-ALKERMES INC.-ALK-2018-005530

PATIENT
  Age: 52 Year
  Sex: Female

DRUGS (1)
  1. ARISTADA [Suspect]
     Active Substance: ARIPIPRAZOLE LAUROXIL
     Indication: SCHIZOPHRENIA
     Dosage: 441 MG, QMO
     Route: 030

REACTIONS (4)
  - Middle insomnia [Not Recovered/Not Resolved]
  - Hallucination, auditory [Not Recovered/Not Resolved]
  - Inappropriate schedule of product administration [Not Recovered/Not Resolved]
  - Underdose [Unknown]

NARRATIVE: CASE EVENT DATE: 2018
